FAERS Safety Report 20081842 (Version 2)
Quarter: 2021Q4

REPORT INFORMATION
  Report Type: Spontaneous
  Country: DE (occurrence: DE)
  Receive Date: 20211117
  Receipt Date: 20211119
  Transmission Date: 20220303
  Serious: Yes (Hospitalization)
  Sender: FDA-Public Use
  Company Number: DE-ADRED-06991-01

PATIENT
  Age: 74 Year
  Sex: Female
  Weight: 54 kg

DRUGS (2)
  1. DICLOFENAC [Suspect]
     Active Substance: DICLOFENAC
     Indication: Product used for unknown indication
     Dosage: UNK (BEI BEDARF, TABLETTEN)
     Route: 048
  2. MOVICOL                            /01749801/ [Concomitant]
     Dosage: UNK (BEI BEDARF, GRANULAT)
     Route: 048

REACTIONS (7)
  - Weight decreased [Recovering/Resolving]
  - Haematochezia [Recovering/Resolving]
  - Flatulence [Recovering/Resolving]
  - Duodenal ulcer [Recovering/Resolving]
  - Constipation [Recovering/Resolving]
  - Abdominal pain [Recovering/Resolving]
  - Vomiting [Recovering/Resolving]
